FAERS Safety Report 6115504-3 (Version None)
Quarter: 2009Q1

REPORT INFORMATION
  Report Type: 
  Country: None (occurrence: None)
  Receive Date: 20090313
  Receipt Date: 20090310
  Transmission Date: 20090719
  Serious: Yes (Death)
  Sender: FDA-Public Use
  Company Number: TR-BRISTOL-MYERS SQUIBB COMPANY-14540686

PATIENT
  Age: 54 Year
  Sex: Male

DRUGS (3)
  1. ABILIFY [Suspect]
     Indication: SCHIZOPHRENIA
     Route: 048
     Dates: start: 20060601
  2. RISPERIDONE [Suspect]
     Dosage: STARTED WITH 2 MILLIGRAM
  3. CLONAZEPAM [Suspect]

REACTIONS (1)
  - DEATH [None]
